FAERS Safety Report 5415578-9 (Version None)
Quarter: 2007Q3

REPORT INFORMATION
  Report Type: 
  Country: None (occurrence: None)
  Receive Date: 20070813
  Receipt Date: 20070808
  Transmission Date: 20080115
  Serious: Yes (Life-Threatening)
  Sender: FDA-Public Use
  Company Number: 062-C5013-07080095

PATIENT
  Age: 68 Year
  Sex: Male
  Weight: 65 kg

DRUGS (1)
  1. CC-5013 (LENALIDOMIDE) (CAPSULES) [Suspect]
     Indication: NON-HODGKIN'S LYMPHOMA
     Dosage: 25 MG, DAILY, ORAL
     Route: 048
     Dates: start: 20070726, end: 20070730

REACTIONS (3)
  - PLEURAL EFFUSION [None]
  - RENAL FAILURE ACUTE [None]
  - RESPIRATORY DISTRESS [None]
